FAERS Safety Report 12362198 (Version 1)
Quarter: 2016Q2

REPORT INFORMATION
  Report Type: Spontaneous
  Country: US (occurrence: US)
  Receive Date: 20160512
  Receipt Date: 20160512
  Transmission Date: 20160815
  Serious: No
  Sender: FDA-Public Use
  Company Number: US-BAXALTA-2016BLT003309

PATIENT
  Sex: Female

DRUGS (1)
  1. ADYNOVATE [Suspect]
     Active Substance: ANTIHEMOPHILIC FACTOR, HUMAN RECOMBINANT
     Indication: PRODUCT USED FOR UNKNOWN INDICATION
     Dosage: UNK UNK, 2X A WEEK
     Route: 065
     Dates: start: 20160402, end: 20160430

REACTIONS (3)
  - Lethargy [Recovered/Resolved]
  - Drug effect decreased [Recovered/Resolved]
  - Somnolence [Recovered/Resolved]
